FAERS Safety Report 7602896-9 (Version None)
Quarter: 2011Q3

REPORT INFORMATION
  Report Type: 
  Country: None (occurrence: None)
  Receive Date: 20110712
  Receipt Date: 20110701
  Transmission Date: 20111222
  Serious: Yes (Hospitalization, Other)
  Sender: FDA-Public Use
  Company Number: FR-JNJFOC-20110103343

PATIENT
  Age: 69 Year
  Sex: Female
  Weight: 52 kg

DRUGS (3)
  1. REMICADE [Suspect]
     Indication: COLITIS ULCERATIVE
     Route: 042
     Dates: start: 20100921
  2. REMICADE [Suspect]
     Dosage: 10 MG/KG WAS TREATMENT DOSE FOR THE EVENT
     Route: 042
     Dates: start: 20100101
  3. AZATHIOPRINE SODIUM [Concomitant]
     Indication: COLITIS ULCERATIVE
     Route: 048
     Dates: start: 20091201

REACTIONS (3)
  - RECTAL HAEMORRHAGE [None]
  - CYTOMEGALOVIRUS INFECTION [None]
  - COLITIS [None]
